FAERS Safety Report 4598143-5 (Version None)
Quarter: 2005Q1

REPORT INFORMATION
  Report Type: 
  Country: None (occurrence: None)
  Receive Date: 20050204
  Receipt Date: 20040625
  Transmission Date: 20050727
  Serious: Yes (Other)
  Sender: FDA-Public Use
  Company Number: PHEH2004US02552

PATIENT
  Age: 51 Year
  Sex: Male

DRUGS (6)
  1. CLOZARIL [Suspect]
     Indication: SCHIZOAFFECTIVE DISORDER
     Dosage: 300 MG/DAY ; 275 MG/DAY  : ORAL
     Route: 048
     Dates: start: 19910601, end: 20030901
  2. CLOZARIL [Suspect]
     Indication: SCHIZOAFFECTIVE DISORDER
     Dosage: 300 MG/DAY ; 275 MG/DAY  : ORAL
     Route: 048
     Dates: start: 20030901
  3. LITHIUM (LITHIUM) [Concomitant]
  4. DOXAZOSIN MESYLATE [Concomitant]
  5. GABITRIL [Concomitant]
  6. CITRUCEL (METHYLCELLULOSE) [Concomitant]

REACTIONS (3)
  - DIZZINESS [None]
  - HEADACHE [None]
  - URINARY RETENTION [None]
